FAERS Safety Report 4398622-X (Version None)
Quarter: 2004Q3

REPORT INFORMATION
  Report Type: 
  Country: None (occurrence: None)
  Receive Date: 20040712
  Receipt Date: 20040623
  Transmission Date: 20050211
  Serious: Yes (Hospitalization)
  Sender: FDA-Public Use
  Company Number: FR-JNJFOC-20040606362

PATIENT
  Age: 76 Year
  Sex: Female

DRUGS (6)
  1. TOPALGIC (TRAMADOL HYDROCHLORIDE) CAPSULES [Suspect]
     Indication: DRUG USE FOR UNKNOWN INDICATION
     Dosage: 50 MG, 3 IN 1 DAY, ORAL
     Route: 048
     Dates: start: 20040415, end: 20040504
  2. AMLODIPINE BESYLATE [Concomitant]
  3. VASTAREL (TRIMETAZIDINE HYDROCHLORIDE) [Concomitant]
  4. MOVICOL (NULYTELY) [Concomitant]
  5. PREVISCAN (FLUINDIONE) [Concomitant]
  6. ATARAX [Concomitant]

REACTIONS (3)
  - CONFUSIONAL STATE [None]
  - HALLUCINATION, VISUAL [None]
  - HYPONATRAEMIA [None]
